FAERS Safety Report 7112863-X (Version None)
Quarter: 2010Q4

REPORT INFORMATION
  Report Type: 
  Country: None (occurrence: None)
  Receive Date: 20101119
  Receipt Date: 20100120
  Transmission Date: 20110411
  Serious: No
  Sender: FDA-Public Use
  Company Number: US-BRISTOL-MYERS SQUIBB COMPANY-14890792

PATIENT
  Age: 71 Year
  Sex: Female
  Weight: 100 kg

DRUGS (11)
  1. AVALIDE [Suspect]
     Indication: HYPERTENSION
     Dosage: 2WEEKS AGO EXP DATE:JUNE2012 ON JAN2010 DOSE REDUCED TO 150MG/12.5MG DAILY
     Route: 048
     Dates: start: 20091214
  2. HYZAAR [Suspect]
     Dosage: 1DF=100/25(UNITS NOT MENTIONED)
     Dates: start: 20080526
  3. VERAPAMIL EXTENDED-RELEASE [Suspect]
     Dosage: VERAPAMIL 240 ER
     Dates: start: 20071108
  4. ANTIVERT [Concomitant]
  5. LORAZEPAM [Concomitant]
  6. XALATAN [Concomitant]
     Dosage: EYE DROPS
  7. MOBIC [Concomitant]
  8. MULTI-VITAMIN [Concomitant]
     Dosage: 40MULTIVIT
  9. LOVAZA [Concomitant]
  10. POTASSIUM CHLORIDE [Concomitant]
  11. CELEBREX [Concomitant]

REACTIONS (3)
  - CHEST DISCOMFORT [None]
  - MUSCLE SPASMS [None]
  - VERTIGO [None]
